FAERS Safety Report 19389184 (Version 3)
Quarter: 2021Q3

REPORT INFORMATION
  Report Type: Spontaneous
  Country: US (occurrence: US)
  Receive Date: 20210608
  Receipt Date: 20210820
  Transmission Date: 20211014
  Serious: No
  Sender: FDA-Public Use
  Company Number: US-BAYER-2021-152682

PATIENT
  Age: 45 Year
  Sex: Female

DRUGS (1)
  1. MIRENA [Suspect]
     Active Substance: LEVONORGESTREL
     Indication: HEAVY MENSTRUAL BLEEDING
     Dosage: 20  ?G PER DAY ,CONTINUOUSLY
     Route: 015
     Dates: start: 20210412

REACTIONS (14)
  - Diarrhoea [None]
  - Pollakiuria [None]
  - Haemoglobin decreased [None]
  - Vaginal haemorrhage [None]
  - Medical device site discomfort [None]
  - Device issue [None]
  - Device expulsion [Not Recovered/Not Resolved]
  - Abdominal pain [None]
  - Blood iron decreased [None]
  - Heavy menstrual bleeding [None]
  - Vaginal odour [None]
  - Urinary tract infection [None]
  - Malaise [None]
  - Dysmenorrhoea [None]

NARRATIVE: CASE EVENT DATE: 20210412
